FAERS Safety Report 10087274 (Version 1)
Quarter: 2014Q2

REPORT INFORMATION
  Report Type: Spontaneous
  Country: CN (occurrence: CN)
  Receive Date: 20140418
  Receipt Date: 20140418
  Transmission Date: 20141212
  Serious: Yes (Life-Threatening, Hospitalization)
  Sender: FDA-Public Use
  Company Number: CN-ABBVIE-14P-035-1227797-00

PATIENT
  Age: 27 Year
  Sex: Female

DRUGS (2)
  1. DEPAKINE CHRONO [Suspect]
     Indication: EPILEPSY
     Dosage: TIME TO ONSET: 1 WEEK
     Route: 048
     Dates: start: 20130617, end: 20130629
  2. LAMOTRIGINE [Suspect]
     Indication: PRODUCT USED FOR UNKNOWN INDICATION
     Route: 048
     Dates: start: 20130617, end: 20130629

REACTIONS (3)
  - Dermatitis bullous [Recovering/Resolving]
  - Skin erosion [Recovering/Resolving]
  - Pyrexia [Recovering/Resolving]
